FAERS Safety Report 14928755 (Version 15)
Quarter: 2019Q1

REPORT INFORMATION
  Report Type: Spontaneous
  Country: FR (occurrence: FR)
  Receive Date: 20180523
  Receipt Date: 20190302
  Transmission Date: 20190417
  Serious: Yes (Other)
  Sender: FDA-Public Use
  Company Number: FR-AUROBINDO-AUR-APL-2018-025734

PATIENT

DRUGS (51)
  1. TRAMADOL. [Suspect]
     Active Substance: TRAMADOL
     Dosage: 100 MILLIGRAM, ONCE A DAY
     Route: 064
     Dates: start: 20160930, end: 20170306
  2. GLICLAZIDE [Suspect]
     Active Substance: GLICLAZIDE
     Indication: TYPE 2 DIABETES MELLITUS
     Dosage: 120 MILLIGRAM, ONCE A DAY
     Route: 064
     Dates: start: 20160930, end: 20170224
  3. LOXEN L P [Suspect]
     Active Substance: NICARDIPINE HYDROCHLORIDE
     Indication: HYPERTENSION
     Dosage: UNK, UNK
     Route: 064
     Dates: start: 20170313, end: 20170405
  4. LOXEN L P [Suspect]
     Active Substance: NICARDIPINE HYDROCHLORIDE
     Dosage: 50 MILLIGRAM, ONCE A DAY
     Route: 064
     Dates: start: 20170313, end: 20180405
  5. INSULIN LISPRO [Suspect]
     Active Substance: INSULIN LISPRO
     Indication: TYPE 2 DIABETES MELLITUS
     Dosage: 21 UG/M2, QD
     Route: 064
     Dates: start: 20170224, end: 20170224
  6. LASIX [Suspect]
     Active Substance: FUROSEMIDE
     Indication: PRODUCT USED FOR UNKNOWN INDICATION
     Dosage: 40 MILLIGRAM
     Route: 064
  7. AMITRIPTYLINE HCL [Suspect]
     Active Substance: AMITRIPTYLINE
     Indication: DIABETIC NEUROPATHY
     Dosage: 2 DOSAGE FORM, ONCE A DAY
     Route: 064
     Dates: start: 20160930, end: 20170914
  8. GABAPENTIN ARROW CAPSULES HARD 400MG [Suspect]
     Active Substance: GABAPENTIN
     Dosage: 400 MILLIGRAM, DAILY
     Route: 064
     Dates: start: 20160930
  9. LABETALOL HYDROCHLORIDE. [Suspect]
     Active Substance: LABETALOL HYDROCHLORIDE
     Indication: HYPERTENSION
     Dosage: 80 MG, QD
     Route: 064
     Dates: start: 20170516, end: 20170914
  10. LANTUS [Suspect]
     Active Substance: INSULIN GLARGINE
     Indication: TYPE 2 DIABETES MELLITUS
     Dosage: 20 IU, QD
     Route: 064
     Dates: start: 20170224, end: 20170914
  11. FOLINIC ACID [Suspect]
     Active Substance: LEUCOVORIN
     Indication: NORMOCHROMIC NORMOCYTIC ANAEMIA
     Dosage: 5 MG, QD
     Route: 064
     Dates: start: 20170224, end: 20170313
  12. METHYLDOPA MSD [Suspect]
     Active Substance: METHYLDOPA
     Indication: HYPERTENSION
     Dosage: 1500 MILLIGRAM, ONCE A DAY
     Route: 064
     Dates: start: 20170720
  13. NICOPATCH [Suspect]
     Active Substance: NICOTINE
     Indication: EX-TOBACCO USER
     Dosage: 7 MILLIGRAM, ONCE A DAY
     Route: 064
     Dates: start: 20170224, end: 20170516
  14. LARGACTIL [Suspect]
     Active Substance: CHLORPROMAZINE
     Indication: BIPOLAR I DISORDER
     Dosage: 25 MG, QD
     Route: 064
     Dates: start: 20170720
  15. METFORMIN [Suspect]
     Active Substance: METFORMIN HYDROCHLORIDE
     Dosage: 850 MILLIGRAM, ONCE A DAY
     Route: 064
     Dates: start: 20160930, end: 20170224
  16. METFORMIN [Suspect]
     Active Substance: METFORMIN HYDROCHLORIDE
     Dosage: 1700 MILLIGRAM, DAILY (QD)
     Route: 064
     Dates: start: 20170804
  17. TRAMADOL. [Suspect]
     Active Substance: TRAMADOL
     Indication: DIABETIC NEUROPATHY
     Dosage: 50 MILLIGRAM, ONCE A DAY
     Route: 064
     Dates: start: 20160930, end: 20170306
  18. FOLIC ACID TABLET [Suspect]
     Active Substance: FOLIC ACID
     Dosage: 5 MILLIGRAM, ONCE A DAY
     Route: 064
     Dates: start: 20170313
  19. LAROXYL [Suspect]
     Active Substance: AMITRIPTYLINE HYDROCHLORIDE
     Indication: DIABETIC NEUROPATHY
     Dosage: 2 DOSAGE FORM, ONCE A DAY
     Route: 064
     Dates: start: 20160930, end: 20170914
  20. FERROUS SULFATE. [Suspect]
     Active Substance: FERROUS SULFATE
     Indication: NORMOCHROMIC NORMOCYTIC ANAEMIA
     Dosage: 1 DOSAGE FORM, ONCE A DAY
     Route: 064
     Dates: start: 20170313, end: 20170914
  21. FUROSEMIDE ARROW TABLETS [Suspect]
     Active Substance: FUROSEMIDE
     Indication: HYPERTENSION
     Dosage: 40 MILLIGRAM
     Route: 064
     Dates: start: 20170516
  22. FOLIC ACID TABLET [Suspect]
     Active Substance: FOLIC ACID
     Indication: NORMOCHROMIC NORMOCYTIC ANAEMIA
     Dosage: 5 MILLIGRAM, ONCE A DAY
     Route: 064
     Dates: start: 20170224, end: 20170313
  23. HUMALOG [Suspect]
     Active Substance: INSULIN LISPRO
     Indication: TYPE 2 DIABETES MELLITUS
     Dosage: 7 MICROGRAM/SQ. METER, ONCE A DAY
     Route: 064
     Dates: start: 20170224
  24. DIFFU K [Suspect]
     Active Substance: POTASSIUM CHLORIDE
     Indication: HYPOKALAEMIA
     Dosage: 3600 MG, QD, 1200 MG, QD (2 TO 3 TIMES PER DAY)
     Route: 064
     Dates: start: 20170804
  25. NICARDIPINE [Suspect]
     Active Substance: NICARDIPINE
     Indication: HYPERTENSION
     Dosage: 50 MILLIGRAM, TWO TIMES A DAY
     Route: 064
     Dates: start: 20170405, end: 20170914
  26. INSULIN [Suspect]
     Active Substance: INSULIN NOS
     Indication: TYPE 2 DIABETES MELLITUS
     Dosage: UNK
     Route: 064
     Dates: start: 20161230, end: 20170224
  27. CALCIUM FOLINATE [Suspect]
     Active Substance: LEUCOVORIN CALCIUM
     Indication: NORMOCHROMIC NORMOCYTIC ANAEMIA
     Dosage: 5 MILLIGRAM, ONCE A DAY
     Route: 064
     Dates: start: 20170224, end: 20170313
  28. METFORMIN [Suspect]
     Active Substance: METFORMIN HYDROCHLORIDE
     Indication: TYPE 2 DIABETES MELLITUS
     Dosage: 1700 MILLIGRAM, DAILY (QD)
     Route: 064
     Dates: start: 20160930, end: 20170224
  29. AMOXICILLIN. [Suspect]
     Active Substance: AMOXICILLIN
     Indication: PRODUCT USED FOR UNKNOWN INDICATION
     Dosage: 3 GRAM, ONCE A DAY
     Route: 064
     Dates: start: 20170804, end: 20170811
  30. AMOXICILLIN. [Suspect]
     Active Substance: AMOXICILLIN
     Dosage: 1 MILLIGRAM, ONCE A DAY
     Route: 064
     Dates: start: 201708, end: 20180811
  31. GABAPENTIN FILM-COATED TABLET [Suspect]
     Active Substance: GABAPENTIN
     Dosage: 400 MILLIGRAM, ONCE A DAY
     Route: 064
     Dates: start: 20160930
  32. FORLAX [Suspect]
     Active Substance: POLYETHYLENE GLYCOL 4000
     Dosage: 1 DF, UNK
     Route: 064
     Dates: start: 20160930, end: 20170405
  33. LARGACTIL [Suspect]
     Active Substance: CHLORPROMAZINE
     Dosage: 0.5 DOSAGE FORM
     Route: 064
  34. AMOXICILLIN. [Suspect]
     Active Substance: AMOXICILLIN
     Dosage: 3 MILLIGRAM, ONCE A DAY
     Route: 064
     Dates: start: 20170804, end: 20170804
  35. GABAPENTIN FILM-COATED TABLET [Suspect]
     Active Substance: GABAPENTIN
     Indication: PRODUCT USED FOR UNKNOWN INDICATION
     Dosage: 800 MILLIGRAM, ONCE A DAY
     Route: 064
     Dates: start: 20160930
  36. ARIPIPRAZOLE. [Suspect]
     Active Substance: ARIPIPRAZOLE
     Indication: BIPOLAR I DISORDER
     Dosage: 10 MG, QD
     Route: 064
     Dates: start: 20160930, end: 20170224
  37. FORLAX [Suspect]
     Active Substance: POLYETHYLENE GLYCOL 4000
     Indication: CONSTIPATION
     Dosage: 1 DF, UNK
     Route: 064
     Dates: start: 20160930, end: 20170224
  38. CHLORHYDRATE DE PROPRANOLOL [Suspect]
     Active Substance: PROPRANOLOL HYDROCHLORIDE
     Indication: HYPERTENSION
     Dosage: 80 MG, QD
     Route: 064
     Dates: start: 20170516
  39. PROPRANOLOL HYDROCHLORIDE. [Suspect]
     Active Substance: PROPRANOLOL HYDROCHLORIDE
     Dosage: 25 MILLIGRAM, ONCE A DAY
     Route: 064
     Dates: start: 20170720
  40. RAMIPRIL. [Suspect]
     Active Substance: RAMIPRIL
     Indication: HYPERTENSION
     Dosage: 2.5 MILLIGRAM, ONCE A DAY
     Route: 064
     Dates: start: 20160930, end: 20170224
  41. GABAPENTIN FILM-COATED TABLET [Suspect]
     Active Substance: GABAPENTIN
     Dosage: 10 INTERNATIONAL UNIT, ONCE A DAY
     Route: 064
     Dates: start: 20160930, end: 20170224
  42. LEVEMIR [Suspect]
     Active Substance: INSULIN DETEMIR
     Indication: TYPE 2 DIABETES MELLITUS
     Dosage: 10 IU, QD
     Route: 064
     Dates: start: 20160930, end: 20170224
  43. HUMALOG [Suspect]
     Active Substance: INSULIN LISPRO
     Dosage: 21 MICROGRAM/SQ. METER, ONCE A DAY
     Route: 064
     Dates: start: 20170224, end: 20170224
  44. INSULIN LISPRO [Suspect]
     Active Substance: INSULIN LISPRO
     Dosage: 7 MICROGRAM/SQ. METER, ONCE A DAY
     Route: 064
     Dates: start: 20170224
  45. PROPRANOLOL HYDROCHLORIDE. [Suspect]
     Active Substance: PROPRANOLOL HYDROCHLORIDE
     Indication: HYPERTENSION
     Dosage: 80 MILLIGRAM, ONCE A DAY
     Route: 064
     Dates: start: 20170516
  46. GABAPENTIN ARROW CAPSULES HARD 400MG [Suspect]
     Active Substance: GABAPENTIN
     Indication: DIABETIC NEUROPATHY
     Dosage: 800 MILLIGRAM, ONCE A DAY
     Route: 064
     Dates: start: 20160930
  47. FUROSEMIDE ARROW TABLETS [Suspect]
     Active Substance: FUROSEMIDE
     Dosage: 50 MILLIGRAM
     Route: 064
     Dates: start: 201705
  48. TARDYFERON [Suspect]
     Active Substance: FERROUS SULFATE
     Indication: NORMOCHROMIC NORMOCYTIC ANAEMIA
     Dosage: 1 DOSAGE FORM, ONCE A DAY
     Route: 064
     Dates: start: 20170313, end: 20170914
  49. DIFFU K [Suspect]
     Active Substance: POTASSIUM CHLORIDE
     Dosage: 1200 MILLIGRAM, ONCE A DAY
     Route: 064
     Dates: start: 20170804
  50. FORLAX [Suspect]
     Active Substance: POLYETHYLENE GLYCOL 4000
     Dosage: 120 MILLIGRAM, ONCE A DAY
     Route: 064
     Dates: start: 20160930, end: 20170224
  51. CHLORPROMAZINE HYDROCHLORIDE. [Suspect]
     Active Substance: CHLORPROMAZINE HYDROCHLORIDE
     Indication: PRODUCT USED FOR UNKNOWN INDICATION
     Dosage: 25 MILLIGRAM, ONCE A DAY
     Route: 064
     Dates: start: 20170720

REACTIONS (5)
  - Neutropenia neonatal [Not Recovered/Not Resolved]
  - Foetal exposure during pregnancy [Unknown]
  - Foetal disorder [Unknown]
  - Premature baby [Recovered/Resolved]
  - Low birth weight baby [Unknown]

NARRATIVE: CASE EVENT DATE: 20170914
